FAERS Safety Report 14176268 (Version 3)
Quarter: 2017Q4

REPORT INFORMATION
  Report Type: Report from Study
  Country: ZA (occurrence: ZA)
  Receive Date: 20171109
  Receipt Date: 20171219
  Transmission Date: 20180321
  Serious: Yes (Hospitalization, Other)
  Sender: FDA-Public Use
  Company Number: ZA-GILEAD-2017-0303501

PATIENT
  Age: 35 Year
  Sex: Female
  Weight: 40 kg

DRUGS (5)
  1. FLUCONAZOLE. [Concomitant]
     Active Substance: FLUCONAZOLE
     Dosage: 400 MG, BID
  2. BACTRIM [Concomitant]
     Active Substance: SULFAMETHOXAZOLE\TRIMETHOPRIM
  3. EFAVIRENZ/EMTRICITABINE/TENOFOVIR DISOPROXIL FUMARATE [Suspect]
     Active Substance: EFAVIRENZ\EMTRICITABINE\TENOFOVIR DISOPROXIL FUMARATE
     Indication: HIV INFECTION
     Dosage: 600 MG EFAVIRENZ CONTENT QD
     Route: 065
  4. CEFTRIAXONE. [Concomitant]
     Active Substance: CEFTRIAXONE
  5. DIFUCAN [Concomitant]
     Dosage: 200 MG, QD

REACTIONS (4)
  - Acute kidney injury [Recovering/Resolving]
  - Encephalopathy [Recovered/Resolved]
  - Drug level increased [Recovered/Resolved]
  - Ataxia [Recovered/Resolved]
